FAERS Safety Report 5001596-1 (Version None)
Quarter: 2006Q2

REPORT INFORMATION
  Report Type: 
  Country: None (occurrence: None)
  Receive Date: 20060511
  Receipt Date: 20060511
  Transmission Date: 20061013
  Serious: Yes (Hospitalization)
  Sender: FDA-Public Use
  Company Number: None

PATIENT
  Age: 54 Year
  Sex: Male

DRUGS (4)
  1. HYDROCHLOROTHIAZIDE [Suspect]
     Indication: BLOOD PRESSURE
     Dosage: 25MG PO BID
     Route: 048
     Dates: start: 20060228, end: 20060313
  2. ALEVE (CAPLET) [Suspect]
     Dosage: 2 TABS X1
     Dates: start: 20060310, end: 20060310
  3. NICOTINE [Concomitant]
  4. ZOLOFT [Concomitant]

REACTIONS (4)
  - DYSPHAGIA [None]
  - OEDEMA MOUTH [None]
  - SWELLING FACE [None]
  - SWOLLEN TONGUE [None]
